FAERS Safety Report 14399644 (Version 2)
Quarter: 2018Q3

REPORT INFORMATION
  Report Type: Spontaneous
  Country: US (occurrence: US)
  Receive Date: 20180117
  Receipt Date: 20180812
  Transmission Date: 20181010
  Serious: No
  Sender: FDA-Public Use
  Company Number: US-JNJFOC-20171212270

PATIENT
  Sex: Female
  Weight: 99.79 kg

DRUGS (10)
  1. CARBIDOPA/LEVODOPA [Concomitant]
     Active Substance: CARBIDOPA\LEVODOPA
     Route: 065
  2. MIDRIN [Concomitant]
     Active Substance: ACETAMINOPHEN\DICHLORALPHENAZONE\ISOMETHEPTENE
     Route: 065
  3. ENTACAPONE. [Concomitant]
     Active Substance: ENTACAPONE
     Route: 065
  4. METOLAZONE. [Concomitant]
     Active Substance: METOLAZONE
     Route: 065
  5. ALLOPURINOL. [Concomitant]
     Active Substance: ALLOPURINOL
     Route: 065
  6. SIMPONI ARIA [Suspect]
     Active Substance: GOLIMUMAB
     Indication: RHEUMATOID ARTHRITIS
     Route: 042
     Dates: start: 201412
  7. SUMATRIPTAN. [Concomitant]
     Active Substance: SUMATRIPTAN
     Route: 065
  8. SIMPONI ARIA [Suspect]
     Active Substance: GOLIMUMAB
     Indication: OSTEOPOROSIS
     Route: 042
     Dates: start: 201412
  9. ZOLEDRONIC ACID [Concomitant]
     Active Substance: ZOLEDRONIC ACID
     Route: 065
  10. MIDODRINE [Concomitant]
     Active Substance: MIDODRINE
     Route: 065

REACTIONS (1)
  - Therapeutic response decreased [Unknown]
